FAERS Safety Report 11680541 (Version 2)
Quarter: 2015Q4

REPORT INFORMATION
  Report Type: Spontaneous
  Country: US (occurrence: US)
  Receive Date: 20151027
  Receipt Date: 20151104
  Transmission Date: 20160304
  Serious: No
  Sender: FDA-Public Use
  Company Number: US-ELI_LILLY_AND_COMPANY-US201009006578

PATIENT
  Age: 76 Year
  Sex: Female

DRUGS (5)
  1. FORTEO [Suspect]
     Active Substance: TERIPARATIDE
     Dosage: 20 UG, DAILY (1/D)
  2. FORTEO [Suspect]
     Active Substance: TERIPARATIDE
     Dosage: 20 UG, QD
     Route: 065
  3. FORTEO [Suspect]
     Active Substance: TERIPARATIDE
     Dosage: 20 UG, DAILY (1/D)
     Route: 065
  4. FORTEO [Suspect]
     Active Substance: TERIPARATIDE
     Indication: OSTEOPOROSIS
     Dosage: 20 UG, DAILY (1/D)
     Dates: start: 20100907
  5. FORTEO [Suspect]
     Active Substance: TERIPARATIDE
     Dosage: 20 UG, DAILY (1/D)

REACTIONS (22)
  - Blood alkaline phosphatase increased [Unknown]
  - Injection site inflammation [Recovered/Resolved]
  - Unevaluable event [Unknown]
  - Cellulitis [Unknown]
  - Feeling cold [Unknown]
  - Haemorrhage [Recovered/Resolved]
  - Injection site erythema [Not Recovered/Not Resolved]
  - Dry skin [Unknown]
  - Pruritus [Unknown]
  - Hypotonia [Unknown]
  - Chills [Unknown]
  - Injection site haemorrhage [Unknown]
  - Injection site pain [Unknown]
  - Somnolence [Not Recovered/Not Resolved]
  - Injection site erythema [Recovered/Resolved]
  - Injection site inflammation [Not Recovered/Not Resolved]
  - Kyphosis [Unknown]
  - Fatigue [Not Recovered/Not Resolved]
  - Injury associated with device [Recovered/Resolved]
  - Piloerection [Unknown]
  - Rash [Unknown]
  - Blood calcium increased [Unknown]

NARRATIVE: CASE EVENT DATE: 201009
